FAERS Safety Report 7555869-9 (Version None)
Quarter: 2011Q2

REPORT INFORMATION
  Report Type: 
  Country: None (occurrence: None)
  Receive Date: 20110618
  Receipt Date: 20081231
  Transmission Date: 20111010
  Serious: Yes (Other)
  Sender: FDA-Public Use
  Company Number: US-BAYER-200910140NA

PATIENT
  Age: 74 Year
  Sex: Male
  Weight: 90 kg

DRUGS (15)
  1. FENTANYL-100 [Concomitant]
     Dosage: 25ML
     Route: 042
     Dates: start: 20070115, end: 20070115
  2. TRASYLOL [Suspect]
     Dosage: 200ML BOLUS DOSE; 50ML/HR INFUSION
     Route: 042
     Dates: start: 20070115, end: 20070115
  3. VERSED [Concomitant]
     Dosage: 10 MG
     Route: 042
     Dates: start: 20070115, end: 20070115
  4. HEPARIN [Concomitant]
     Dosage: 30,000U
     Route: 042
     Dates: start: 20070115, end: 20070115
  5. LIPITOR [Concomitant]
     Dosage: 20 MG
     Route: 048
  6. DOPAMINE HCL [Concomitant]
     Dosage: UNK
     Dates: start: 20070115
  7. DARVOCET [Concomitant]
  8. CEFAZOLIN [Concomitant]
     Dosage: 2 G
     Dates: start: 20070115
  9. CALCIUM CHLORIDE [Concomitant]
     Dosage: UNK
     Dates: start: 20070115
  10. AGGRENOX [Concomitant]
  11. AMIODARONE HCL [Concomitant]
  12. PROPRANOLOL [Concomitant]
     Dosage: 40 MG, QD
     Route: 048
  13. ACETYLSALICYLIC ACID SRT [Concomitant]
     Dosage: 81 MG
     Route: 048
  14. TRASYLOL [Suspect]
     Indication: CORONARY ARTERY BYPASS
     Dosage: UNK, INTIAL TEST DOSE
     Route: 042
     Dates: start: 20070115, end: 20070115
  15. NOREPINEPHRINE BITARTRATE [Concomitant]
     Dosage: UNK
     Route: 042
     Dates: start: 20070115

REACTIONS (5)
  - PAIN [None]
  - CEREBROVASCULAR ACCIDENT [None]
  - UNEVALUABLE EVENT [None]
  - INSOMNIA [None]
  - INJURY [None]
